FAERS Safety Report 7963201-1 (Version None)
Quarter: 2011Q4

REPORT INFORMATION
  Report Type: 
  Country: None (occurrence: None)
  Receive Date: 20111208
  Receipt Date: 20111202
  Transmission Date: 20120403
  Serious: Yes (Death, Hospitalization)
  Sender: FDA-Public Use
  Company Number: US-BIOGENIDEC-2010BI043441

PATIENT
  Sex: Male

DRUGS (2)
  1. AVONEX [Suspect]
     Indication: MULTIPLE SCLEROSIS
     Route: 030
     Dates: start: 20100215, end: 20101101
  2. AVONEX [Suspect]
     Route: 030
     Dates: start: 19980119, end: 20090601

REACTIONS (4)
  - POOR PERIPHERAL CIRCULATION [None]
  - CARDIAC FAILURE [None]
  - EMOTIONAL DISTRESS [None]
  - THROMBOSIS [None]
